FAERS Safety Report 20173533 (Version 2)
Quarter: 2022Q1

REPORT INFORMATION
  Report Type: Spontaneous
  Country: US (occurrence: US)
  Receive Date: 20211212
  Receipt Date: 20220216
  Transmission Date: 20220423
  Serious: Yes (Hospitalization)
  Sender: FDA-Public Use
  Company Number: US-BIOGEN-2021BI01076038

PATIENT
  Sex: Female

DRUGS (2)
  1. PLEGRIDY [Suspect]
     Active Substance: PEGINTERFERON BETA-1A
     Indication: Multiple sclerosis
     Route: 058
     Dates: start: 20151020, end: 2018
  2. PLEGRIDY [Suspect]
     Active Substance: PEGINTERFERON BETA-1A

REACTIONS (9)
  - Loss of consciousness [Unknown]
  - Oxygen saturation decreased [Unknown]
  - Vitamin D decreased [Unknown]
  - Gait disturbance [Unknown]
  - Visual impairment [Unknown]
  - Colour blindness [Unknown]
  - Stress [Unknown]
  - Depression [Unknown]
  - Vitamin D deficiency [Unknown]
